FAERS Safety Report 22641937 (Version 1)
Quarter: 2023Q2

REPORT INFORMATION
  Report Type: Spontaneous
  Country: US (occurrence: None)
  Receive Date: 20230623
  Receipt Date: 20230623
  Transmission Date: 20230722
  Serious: Yes (Hospitalization)
  Sender: FDA-Public Use
  Company Number: None

PATIENT
  Sex: Female

DRUGS (1)
  1. HUMIRA [Suspect]
     Active Substance: ADALIMUMAB
     Indication: Hidradenitis
     Dosage: 80MG EVERY 14 DAYS SUBCUTANEOUS?
     Route: 058
     Dates: start: 20220720

REACTIONS (2)
  - Hidradenitis [None]
  - Condition aggravated [None]
